FAERS Safety Report 12139982 (Version 1)
Quarter: 2016Q1

REPORT INFORMATION
  Report Type: Spontaneous
  Country: CN (occurrence: CN)
  Receive Date: 20160303
  Receipt Date: 20160303
  Transmission Date: 20160526
  Serious: Yes (Other)
  Sender: FDA-Public Use
  Company Number: CN-CIPLA LTD.-2016CN01635

PATIENT

DRUGS (4)
  1. ZOLEDRONIC ACID [Suspect]
     Active Substance: ZOLEDRONIC ACID
     Indication: OSTEOPOROSIS POSTMENOPAUSAL
     Dosage: 5 MG IN 100 ML NORMAL SALINE OVER 15 MIN AT A CONSTANT INFUSION RATE
  2. VITAMIN D SUPPLEMENTS [Concomitant]
     Dosage: UNK
     Route: 065
  3. ALENDRONATE [Suspect]
     Active Substance: ALENDRONATE SODIUM
     Dosage: 70 MG, ONCE PER WEEK
     Route: 048
  4. CALCIUM SUPPLEMENTS [Concomitant]
     Active Substance: CALCIUM
     Dosage: UNK
     Route: 065

REACTIONS (6)
  - Asthenia [Recovered/Resolved]
  - Uveitis [Recovered/Resolved]
  - Macular oedema [Recovered/Resolved]
  - Fatigue [Recovered/Resolved]
  - Xerophthalmia [Recovered/Resolved]
  - Pain [Recovered/Resolved]
